FAERS Safety Report 24292351 (Version 1)
Quarter: 2024Q3

REPORT INFORMATION
  Report Type: Report from Study
  Country: CA (occurrence: CA)
  Receive Date: 20240906
  Receipt Date: 20240906
  Transmission Date: 20241017
  Serious: Yes (Hospitalization, Other)
  Sender: EMD SERONO INC
  Company Number: CA-Merck Healthcare KGaA-2024046222

PATIENT
  Sex: Female

DRUGS (2)
  1. MAVENCLAD [Suspect]
     Active Substance: CLADRIBINE
     Indication: Multiple sclerosis
     Dosage: YEAR ONE THERAPY
     Route: 048
     Dates: start: 20230120
  2. MAVENCLAD [Suspect]
     Active Substance: CLADRIBINE
     Dosage: YEAR TWO WEEK ONE THERAPY
     Route: 048
     Dates: end: 20240301

REACTIONS (8)
  - Pain of skin [Unknown]
  - Cardiac stress test abnormal [Unknown]
  - Cardiac disorder [Unknown]
  - Hypertension [Unknown]
  - Peripheral swelling [Unknown]
  - Heart rate increased [Unknown]
  - Chest discomfort [Unknown]
  - Stent placement [Unknown]
